FAERS Safety Report 15105615 (Version 2)
Quarter: 2018Q3

REPORT INFORMATION
  Report Type: Spontaneous
  Country: JP (occurrence: JP)
  Receive Date: 20180704
  Receipt Date: 20180827
  Transmission Date: 20181010
  Serious: Yes (Hospitalization, Other)
  Sender: FDA-Public Use
  Company Number: JP-BRISTOL-MYERS SQUIBB COMPANY-BMS-2018-060611

PATIENT
  Age: 56 Year
  Sex: Female
  Weight: 48.5 kg

DRUGS (3)
  1. OPDIVO [Suspect]
     Active Substance: NIVOLUMAB
     Indication: MALIGNANT MELANOMA
     Dosage: UNK, Q2WK
     Route: 065
     Dates: start: 201710
  2. CORTRIL [Concomitant]
     Active Substance: HYDROCORTISONE
     Indication: PRODUCT USED FOR UNKNOWN INDICATION
     Route: 065
  3. YERVOY [Suspect]
     Active Substance: IPILIMUMAB
     Indication: MALIGNANT MELANOMA
     Dosage: 147 MG, UNK
     Route: 041
     Dates: start: 20180416, end: 20180625

REACTIONS (7)
  - Interstitial lung disease [Recovering/Resolving]
  - Adrenal insufficiency [Unknown]
  - Drug eruption [Unknown]
  - Malignant neoplasm progression [Unknown]
  - Pyrexia [Recovering/Resolving]
  - Cough [Unknown]
  - Malaise [Unknown]

NARRATIVE: CASE EVENT DATE: 201802
